FAERS Safety Report 23767635 (Version 2)
Quarter: 2024Q2

REPORT INFORMATION
  Report Type: Other
  Country: ES (occurrence: None)
  Receive Date: 20240422
  Receipt Date: 20240425
  Transmission Date: 20240716
  Serious: Yes (Other)
  Sender: FDA-Public Use
  Company Number: ES-ROCHE-3547719

PATIENT

DRUGS (1)
  1. ATEZOLIZUMAB [Suspect]
     Active Substance: ATEZOLIZUMAB
     Indication: Bladder transitional cell carcinoma
     Route: 042

REACTIONS (7)
  - Hepatitis [Recovered/Resolved]
  - Encephalitis [Recovered/Resolved]
  - Pneumonitis [Recovered/Resolved]
  - Dermatitis [Recovered/Resolved]
  - Myocarditis [Recovered/Resolved]
  - Adrenal insufficiency [Recovered/Resolved]
  - Psoriasis [Recovered/Resolved]
